FAERS Safety Report 9706060 (Version 1)
Quarter: 2013Q4

REPORT INFORMATION
  Report Type: Report from Study
  Country: AT (occurrence: AT)
  Receive Date: 20131123
  Receipt Date: 20131123
  Transmission Date: 20140711
  Serious: Yes (Other)
  Sender: FDA-Public Use
  Company Number: PHHY2013AT134068

PATIENT
  Sex: 0

DRUGS (1)
  1. IMATINIB [Suspect]
     Dosage: { 400 MG

REACTIONS (3)
  - Faecaloma [Unknown]
  - Rectal neoplasm [Unknown]
  - Abdominal distension [Unknown]
